FAERS Safety Report 7913978-6 (Version None)
Quarter: 2011Q4

REPORT INFORMATION
  Report Type: 
  Country: None (occurrence: None)
  Receive Date: 20111115
  Receipt Date: 20111103
  Transmission Date: 20120403
  Serious: Yes (Hospitalization, Other)
  Sender: FDA-Public Use
  Company Number: US-BAYER-2011-004032

PATIENT
  Age: 42 Year
  Sex: Female

DRUGS (14)
  1. AVAPRO [Concomitant]
     Indication: HYPERTENSION
     Dosage: 300 MG, UNK
     Route: 048
     Dates: start: 20080101
  2. METHYLPREDNISOLONE [Concomitant]
     Dosage: 4 MG, UNK
     Route: 048
     Dates: start: 20091202
  3. FLEXERIL [Concomitant]
     Dosage: 20 MG, QD
     Route: 048
  4. NITROFURANT MACRO [Concomitant]
     Dosage: 100 MG, UNK
     Route: 048
  5. CEPHALEXIN [Concomitant]
     Dosage: 500 MG, UNK
     Dates: start: 20081224
  6. MOTRIN [Concomitant]
     Indication: PAIN
     Dosage: 200 MG, UNK
     Route: 048
  7. SUMATRIPTAN SUCCINATE [Concomitant]
     Dosage: 100 MG, UNK
     Route: 048
  8. AUGMENTIN [Concomitant]
     Dosage: 125 MG, UNK
     Dates: start: 20090106
  9. YAZ [Suspect]
     Indication: PREMENSTRUAL SYNDROME
     Dosage: UNK
     Dates: start: 20070701, end: 20090101
  10. HYDROMORPHONE HCL [Concomitant]
     Dosage: 2 MG, UNK
     Route: 048
  11. YAZ [Suspect]
     Indication: CONTRACEPTION
     Dosage: UNK
     Dates: start: 20070101, end: 20090101
  12. LYRICA [Concomitant]
     Indication: PARAESTHESIA
     Dosage: 150 MG, UNK
     Route: 048
     Dates: start: 20060101
  13. ZYRTEC [Concomitant]
     Route: 048
  14. IMITREX [Concomitant]
     Indication: MIGRAINE
     Dosage: UNK
     Dates: start: 20020101, end: 20090101

REACTIONS (8)
  - PAIN [None]
  - INJURY [None]
  - CHOLELITHIASIS [None]
  - GENERAL PHYSICAL HEALTH DETERIORATION [None]
  - ANHEDONIA [None]
  - DEEP VEIN THROMBOSIS [None]
  - ANXIETY [None]
  - EMOTIONAL DISTRESS [None]
